FAERS Safety Report 11871575 (Version 1)
Quarter: 2015Q4

REPORT INFORMATION
  Report Type: Spontaneous
  Country: US (occurrence: None)
  Receive Date: 20151224
  Receipt Date: 20151224
  Transmission Date: 20160305
  Serious: Yes (Hospitalization)
  Sender: FDA-Public Use
  Company Number: None

PATIENT
  Age: 79 Year
  Sex: Female

DRUGS (9)
  1. DILTIAZEM [Concomitant]
     Active Substance: DILTIAZEM
  2. FLUTICASONE [Concomitant]
     Active Substance: FLUTICASONE\FLUTICASONE PROPIONATE
  3. HYDROCORTISONE. [Concomitant]
     Active Substance: HYDROCORTISONE
  4. ALBUTEROL. [Concomitant]
     Active Substance: ALBUTEROL
  5. COLCHICINE. [Concomitant]
     Active Substance: COLCHICINE
  6. WARFARIN [Suspect]
     Active Substance: WARFARIN
     Indication: AORTIC VALVE REPLACEMENT
     Route: 048
     Dates: start: 2001
  7. BUDESONIDE. [Concomitant]
     Active Substance: BUDESONIDE
  8. AZATHIOPRINE. [Concomitant]
     Active Substance: AZATHIOPRINE
  9. CALCIUM + VITAMIN D [Concomitant]
     Active Substance: CALCIUM\VITAMIN D

REACTIONS (4)
  - Hypophagia [None]
  - Chest discomfort [None]
  - International normalised ratio increased [None]
  - Dyspnoea [None]

NARRATIVE: CASE EVENT DATE: 20151016
